FAERS Safety Report 6014618-6 (Version None)
Quarter: 2008Q4

REPORT INFORMATION
  Report Type: 
  Country: None (occurrence: None)
  Receive Date: 20081219
  Receipt Date: 20080922
  Transmission Date: 20090506
  Serious: No
  Sender: FDA-Public Use
  Company Number: A0748563A

PATIENT
  Age: 73 Year
  Sex: Male

DRUGS (7)
  1. AVODART [Suspect]
     Indication: BENIGN PROSTATIC HYPERPLASIA
     Dosage: .5MG PER DAY
     Route: 048
     Dates: start: 20080915, end: 20080919
  2. FLOMAX [Concomitant]
  3. DIAVAN [Concomitant]
  4. ALTACE [Concomitant]
  5. CLARINEX [Concomitant]
  6. LUNESTA [Concomitant]
  7. OMEPRAZOLE [Concomitant]

REACTIONS (1)
  - DYSPEPSIA [None]
